FAERS Safety Report 16456734 (Version 1)
Quarter: 2019Q2

REPORT INFORMATION
  Report Type: Spontaneous
  Country: US (occurrence: US)
  Receive Date: 20190509
  Receipt Date: 20190509
  Transmission Date: 20190711
  Serious: Yes (Hospitalization)
  Sender: FDA-Public Use
  Company Number: None

PATIENT
  Age: 57 Year
  Sex: Male
  Weight: 67.1 kg

DRUGS (6)
  1. RIFAMPIN. [Concomitant]
     Active Substance: RIFAMPIN
     Dates: start: 20170414, end: 20170502
  2. NIVOLUMAB 240MG [Suspect]
     Active Substance: NIVOLUMAB
     Indication: GASTROINTESTINAL STROMAL TUMOUR
     Dosage: ?          OTHER FREQUENCY:EVERY 2 WEEKS;?
     Route: 042
     Dates: start: 20170329, end: 20170410
  3. PYRAZINAMIDE. [Concomitant]
     Active Substance: PYRAZINAMIDE
     Dates: start: 20170414, end: 20170502
  4. INH [Concomitant]
     Active Substance: ISONIAZID
     Dates: start: 20170414, end: 20170502
  5. ETHAMBUTOL [Concomitant]
     Active Substance: ETHAMBUTOL HYDROCHLORIDE
     Dates: start: 20170414, end: 20170502
  6. IPILIMUMAB 1MG/KG [Suspect]
     Active Substance: IPILIMUMAB
     Indication: GASTROINTESTINAL STROMAL TUMOUR
     Dosage: ?          OTHER DOSE:1MG/KG;OTHER FREQUENCY:EVERY 6 WEEKS;?
     Route: 042
     Dates: start: 20170329, end: 20170329

REACTIONS (10)
  - Transaminases increased [None]
  - Acute kidney injury [None]
  - Failure to thrive [None]
  - Hypophagia [None]
  - Dehydration [None]
  - Chronic kidney disease [None]
  - Hyperlipidaemia [None]
  - Disease progression [None]
  - Abnormal loss of weight [None]
  - Hepatic function abnormal [None]

NARRATIVE: CASE EVENT DATE: 20170502
